FAERS Safety Report 17651559 (Version 1)
Quarter: 2020Q2

REPORT INFORMATION
  Report Type: Spontaneous
  Country: US (occurrence: US)
  Receive Date: 20200409
  Receipt Date: 20200409
  Transmission Date: 20200713
  Serious: Yes (Hospitalization)
  Sender: FDA-Public Use
  Company Number: None

PATIENT
  Sex: Male

DRUGS (7)
  1. MORPHINE [Concomitant]
     Active Substance: MORPHINE
  2. GABAPENTIN. [Concomitant]
     Active Substance: GABAPENTIN
  3. XGEVA [Suspect]
     Active Substance: DENOSUMAB
     Indication: BRONCHIAL CARCINOMA
     Dosage: ?          OTHER FREQUENCY:EVERY 4 WEEKS;?
     Route: 058
     Dates: start: 20190214
  4. BENADRYL [Concomitant]
     Active Substance: DIPHENHYDRAMINE HYDROCHLORIDE
  5. CALCIUM [Concomitant]
     Active Substance: CALCIUM
  6. OXYCODONE [Concomitant]
     Active Substance: OXYCODONE
  7. TAGRISSO [Concomitant]
     Active Substance: OSIMERTINIB

REACTIONS (4)
  - Neoplasm malignant [None]
  - Seizure [None]
  - Muscle twitching [None]
  - Metastases to central nervous system [None]
